FAERS Safety Report 6678737-3 (Version None)
Quarter: 2010Q2

REPORT INFORMATION
  Report Type: 
  Country: None (occurrence: None)
  Receive Date: 20100413
  Receipt Date: 20100401
  Transmission Date: 20101027
  Serious: Yes (Other)
  Sender: FDA-Public Use
  Company Number: US-JNJFOC-20100307198

PATIENT
  Sex: Female
  Weight: 49.9 kg

DRUGS (4)
  1. REMICADE [Suspect]
     Indication: COLITIS ULCERATIVE
     Route: 042
  2. REMICADE [Suspect]
     Route: 042
  3. PREDNISOLONE [Concomitant]
     Indication: COLITIS ULCERATIVE
  4. MERCAPTOPURINE [Concomitant]
     Indication: COLITIS ULCERATIVE

REACTIONS (11)
  - CHEST DISCOMFORT [None]
  - COLITIS ULCERATIVE [None]
  - DRUG INEFFECTIVE [None]
  - IMPAIRED HEALING [None]
  - OEDEMA PERIPHERAL [None]
  - PARAESTHESIA [None]
  - PRURITUS [None]
  - RESPIRATORY TRACT CONGESTION [None]
  - SKIN BURNING SENSATION [None]
  - SKIN DISCOLOURATION [None]
  - TOOTH EXTRACTION [None]
